FAERS Safety Report 13653216 (Version 1)
Quarter: 2017Q2

REPORT INFORMATION
  Report Type: Spontaneous
  Country: US (occurrence: US)
  Receive Date: 20170614
  Receipt Date: 20170614
  Transmission Date: 20170830
  Serious: No
  Sender: FDA-Public Use
  Company Number: US-ROCHE-669791

PATIENT
  Age: 78 Year
  Sex: Female

DRUGS (2)
  1. AVASTIN [Suspect]
     Active Substance: BEVACIZUMAB
     Indication: BREAST CANCER
     Dosage: FORM: INFUSION; RECEIVED 5 DOSES
     Route: 042
  2. XELODA [Suspect]
     Active Substance: CAPECITABINE
     Indication: BREAST CANCER
     Route: 065

REACTIONS (1)
  - Infusion site extravasation [Unknown]

NARRATIVE: CASE EVENT DATE: 20091118
